FAERS Safety Report 9619282 (Version 2)
Quarter: 2014Q1

REPORT INFORMATION
  Report Type: Spontaneous
  Country: GB (occurrence: GB)
  Receive Date: 20131014
  Receipt Date: 20140206
  Transmission Date: 20141002
  Serious: Yes (Other)
  Sender: FDA-Public Use
  Company Number: GB-PFIZER INC-2013287786

PATIENT
  Age: 71 Year
  Sex: Male

DRUGS (23)
  1. VANCOMYCIN HCL [Suspect]
     Indication: ENDOCARDITIS BACTERIAL
     Dosage: 1 G 12-HOURLY FOR 1 DAY, INCREASED TO 1.25 G 12-HOURLY FOR 12 DAYS, REDUCED TO 750 MG 12-HOURLY
     Route: 042
     Dates: start: 20130810
  2. VANCOMYCIN HCL [Suspect]
     Dosage: 1 G 12-HOURLY FOR 1 DAY, INCREASED TO 1.25 G 12-HOURLY FOR 12 DAYS, REDUCED TO 750 MG 12-HOURLY
     Route: 042
     Dates: start: 20130814
  3. VANCOMYCIN HCL [Suspect]
     Dosage: 1 G 12-HOURLY FOR 1 DAY, INCREASED TO 1.25 G 12-HOURLY FOR 12 DAYS, REDUCED TO 750 MG 12-HOURLY
     Route: 042
     Dates: end: 20130901
  4. MEROPENEM [Suspect]
     Indication: ENDOCARDITIS BACTERIAL
     Dosage: 2 G, UNK
     Route: 042
     Dates: start: 20130814, end: 20130901
  5. PARACETAMOL [Concomitant]
     Indication: PAIN
     Dosage: UNK
     Dates: start: 20130802
  6. PABRINEX [Concomitant]
     Dosage: UNK
     Dates: start: 20130802, end: 20130813
  7. PIPERACILLIN/TAZOBACTAM [Concomitant]
     Indication: PNEUMONIA ASPIRATION
     Dosage: UNK
     Dates: start: 20130802, end: 20130813
  8. ENOXAPARIN [Concomitant]
     Dosage: UNK
     Dates: start: 20130802, end: 20130903
  9. NORMAL SALINE [Concomitant]
     Dosage: UNK
     Route: 055
     Dates: start: 20130802
  10. SALBUTAMOL [Concomitant]
     Dosage: UNK
     Route: 055
     Dates: start: 20130904
  11. GENTAMICIN [Concomitant]
     Indication: PNEUMONIA ASPIRATION
     Dosage: UNK
     Dates: start: 20130805, end: 20130806
  12. AMLODIPINE [Concomitant]
     Indication: HYPERTENSION
     Dosage: UNK
     Dates: start: 20130806
  13. METRONIDAZOLE [Concomitant]
     Dosage: UNK
     Dates: start: 20130806, end: 20130812
  14. FERROUS FUMARATE [Concomitant]
     Indication: IRON DEFICIENCY
     Dosage: UNK (LIQUID)
     Dates: start: 20130812, end: 20130902
  15. PHOSPHATE-SANDOZ [Concomitant]
     Indication: HYPOPHOSPHATAEMIA
     Dosage: UNK
     Dates: start: 20130817, end: 20130903
  16. BENZYDAMINE HYDROCHLORIDE [Concomitant]
     Indication: ORAL PAIN
     Dosage: UNK
     Dates: start: 20130819
  17. CASPOFUNGIN [Concomitant]
     Indication: ENDOCARDITIS
     Dosage: UNK
     Dates: start: 20130820, end: 20130826
  18. DEXAMETHASONE [Concomitant]
     Dosage: UNK
     Dates: start: 20130822, end: 20130823
  19. HYOSCINE [Concomitant]
     Dosage: UNK
     Route: 062
     Dates: start: 20130825
  20. GLYCOPYRROLATE [Concomitant]
     Dosage: UNK
     Dates: start: 20130822, end: 20130822
  21. CHLORPHENAMINE MALEATE [Concomitant]
     Indication: RASH
     Dosage: UNK
     Dates: start: 20130827
  22. CARBOCISTEINE [Concomitant]
     Dosage: UNK
     Dates: start: 20130828
  23. VORICONAZOLE [Concomitant]
     Indication: ENDOCARDITIS
     Dosage: UNK
     Dates: start: 20130828, end: 20130831

REACTIONS (9)
  - Drug eruption [Recovered/Resolved]
  - Rash erythematous [Recovered/Resolved]
  - Rash maculo-papular [Recovered/Resolved]
  - Petechiae [Recovered/Resolved]
  - Unresponsive to stimuli [Unknown]
  - Tremor [Unknown]
  - Emotional distress [Unknown]
  - Skin lesion [Recovered/Resolved]
  - Blister [Recovered/Resolved]
